FAERS Safety Report 7546299-4 (Version None)
Quarter: 2011Q2

REPORT INFORMATION
  Report Type: 
  Country: None (occurrence: None)
  Receive Date: 20110614
  Receipt Date: 20040329
  Transmission Date: 20111010
  Serious: Yes (Other)
  Sender: FDA-Public Use
  Company Number: PHFR2004GB01219

PATIENT
  Sex: Male

DRUGS (2)
  1. CLOZAPINE [Suspect]
     Indication: SCHIZOPHRENIA
     Dosage: 400 MG/DAY
     Route: 048
     Dates: start: 20040214
  2. AMISULPRIDE [Concomitant]
     Dosage: 400 MG/DAY
     Route: 048
     Dates: start: 20031002

REACTIONS (1)
  - LYMPHOCYTE COUNT DECREASED [None]
